FAERS Safety Report 6126073 (Version 13)
Quarter: 2016Q1

REPORT INFORMATION
  Report Type: Spontaneous
  Country: US (occurrence: US)
  Receive Date: 20060622
  Receipt Date: 20160321
  Transmission Date: 20160526
  Serious: Yes (Death)
  Sender: FDA-Public Use
  Company Number: US-JNJFOC-20050802942

PATIENT
  Age: 50 Year
  Sex: Female
  Weight: 104.33 kg

DRUGS (19)
  1. LORCET [Suspect]
     Active Substance: ACETAMINOPHEN\HYDROCODONE BITARTRATE
     Indication: BREAKTHROUGH PAIN
     Dosage: EVERY 4 TO 6 HOURS
     Route: 048
     Dates: start: 20040610
  2. HYDROCODONE [Suspect]
     Active Substance: HYDROCODONE
     Indication: PAIN
     Dosage: 10 TO 500 DOSE (S) 1/ 4 TO 6 HOURS??21-SEP-1998
     Route: 048
     Dates: start: 2000, end: 20040719
  3. TRAZODONE [Concomitant]
     Active Substance: TRAZODONE HYDROCHLORIDE
     Indication: SLEEP DISORDER
     Route: 065
  4. ALPRAZOLAM. [Concomitant]
     Active Substance: ALPRAZOLAM
     Indication: SLEEP DISORDER
     Route: 065
  5. DURAGESIC [Suspect]
     Active Substance: FENTANYL
     Indication: BACK PAIN
     Route: 062
     Dates: start: 2003, end: 200405
  6. DURAGESIC [Suspect]
     Active Substance: FENTANYL
     Indication: BACK PAIN
     Dosage: PLESAE REFER NOTEPAD
     Route: 062
     Dates: start: 2001
  7. LORCET [Suspect]
     Active Substance: ACETAMINOPHEN\HYDROCODONE BITARTRATE
     Indication: BREAKTHROUGH PAIN
     Dosage: EVERY 4 TO 6 HOURS
     Route: 048
     Dates: start: 20040414
  8. DURAGESIC [Suspect]
     Active Substance: FENTANYL
     Indication: BACK PAIN
     Route: 062
     Dates: end: 200405
  9. DURAGESIC [Suspect]
     Active Substance: FENTANYL
     Indication: BACK PAIN
     Route: 062
     Dates: end: 20030117
  10. LORTAB [Concomitant]
     Active Substance: ACETAMINOPHEN\HYDROCODONE BITARTRATE
     Indication: BREAKTHROUGH PAIN
     Dosage: 10/500MG 1 TABLET EVERY 4-6 HRS AS NEEDED
     Route: 065
  11. PROZAC [Concomitant]
     Active Substance: FLUOXETINE HYDROCHLORIDE
     Indication: PRODUCT USED FOR UNKNOWN INDICATION
     Route: 048
     Dates: start: 20040414
  12. DURAGESIC [Suspect]
     Active Substance: FENTANYL
     Indication: BACK PAIN
     Route: 062
     Dates: start: 20010713
  13. DURAGESIC [Suspect]
     Active Substance: FENTANYL
     Indication: BACK PAIN
     Route: 062
     Dates: start: 20010116, end: 20020226
  14. LORCET [Suspect]
     Active Substance: ACETAMINOPHEN\HYDROCODONE BITARTRATE
     Indication: BREAKTHROUGH PAIN
     Dosage: EVERY 4 TO 6 HOURS
     Route: 048
     Dates: start: 20040517
  15. AMBIEN [Concomitant]
     Active Substance: ZOLPIDEM TARTRATE
     Indication: SLEEP DISORDER
     Dosage: 1 OR 2 TABLETS AT BEDTIME??12-SEP-2003
     Route: 048
     Dates: start: 20040414
  16. DURAGESIC [Suspect]
     Active Substance: FENTANYL
     Indication: BACK PAIN
     Route: 062
     Dates: start: 20040521, end: 20040719
  17. LORCET [Suspect]
     Active Substance: ACETAMINOPHEN\HYDROCODONE BITARTRATE
     Indication: BREAKTHROUGH PAIN
     Dosage: EVERY 4 TO 6 HOURS??DOSE DECREASED BY 25%
     Route: 048
     Dates: start: 20040703
  18. XANAX [Concomitant]
     Active Substance: ALPRAZOLAM
     Indication: SLEEP DISORDER
     Route: 048
     Dates: start: 20040414
  19. ZOLOFT [Concomitant]
     Active Substance: SERTRALINE HYDROCHLORIDE
     Indication: SLEEP DISORDER
     Route: 048
     Dates: start: 20040414

REACTIONS (23)
  - Adverse drug reaction [Unknown]
  - Sedation [Unknown]
  - Treatment noncompliance [Unknown]
  - Dyspnoea [Fatal]
  - Nausea [Unknown]
  - Weight increased [Unknown]
  - Device leakage [Unknown]
  - Incorrect drug administration rate [Unknown]
  - Product quality issue [Unknown]
  - Vomiting [Unknown]
  - Confusional state [Unknown]
  - Toxicity to various agents [Fatal]
  - Cardiovascular disorder [Fatal]
  - Drug tolerance [Unknown]
  - Drug ineffective [Unknown]
  - Accidental overdose [Fatal]
  - Unresponsive to stimuli [Unknown]
  - Poor quality drug administered [Unknown]
  - Social avoidant behaviour [Unknown]
  - Mental disorder [Unknown]
  - Abdominal discomfort [Unknown]
  - Malaise [Unknown]
  - Drug administered at inappropriate site [Unknown]

NARRATIVE: CASE EVENT DATE: 2004
